FAERS Safety Report 23221025 (Version 1)
Quarter: 2023Q4

REPORT INFORMATION
  Report Type: Spontaneous
  Country: US (occurrence: US)
  Receive Date: 20231123
  Receipt Date: 20231123
  Transmission Date: 20240110
  Serious: No
  Sender: FDA-Public Use
  Company Number: US-CIPLA LTD.-2023US03746

PATIENT

DRUGS (7)
  1. GABAPENTIN [Suspect]
     Active Substance: GABAPENTIN
     Indication: Herpes zoster
     Dosage: UNK
     Route: 065
     Dates: start: 202302, end: 202302
  2. CALCIUM\CHOLECALCIFEROL [Concomitant]
     Active Substance: CALCIUM\CHOLECALCIFEROL
     Indication: Osteoporosis
     Dosage: 600 MILLIGRAM, QD
     Route: 065
     Dates: start: 2023
  3. MAGNESIUM [Concomitant]
     Active Substance: MAGNESIUM
     Indication: Muscle disorder
     Dosage: 400 MILLIGRAM, BID
     Route: 065
     Dates: start: 2023
  4. MAGNESIUM [Concomitant]
     Active Substance: MAGNESIUM
     Indication: Cardiac disorder
  5. MAGNESIUM [Concomitant]
     Active Substance: MAGNESIUM
     Indication: Bone disorder
  6. POTASSIUM CHLORIDE [Concomitant]
     Active Substance: POTASSIUM CHLORIDE
     Indication: Blood potassium decreased
     Dosage: 10 MILLIEQUIVALENT, QD
     Route: 065
     Dates: start: 2021
  7. ALENDRONATE [Concomitant]
     Active Substance: ALENDRONATE SODIUM
     Indication: Osteoporosis
     Dosage: UNK (ONE TABLET ONCE A WEEK)
     Route: 065
     Dates: start: 2021

REACTIONS (2)
  - Balance disorder [Recovered/Resolved]
  - Dizziness [Recovered/Resolved]

NARRATIVE: CASE EVENT DATE: 20230201
